FAERS Safety Report 22271194 (Version 1)
Quarter: 2023Q2

REPORT INFORMATION
  Report Type: Spontaneous
  Country: None (occurrence: US)
  Receive Date: 20230501
  Receipt Date: 20230501
  Transmission Date: 20230722
  Serious: No
  Sender: FDA-Public Use
  Company Number: US-McGuff Pharmaceuticals, Inc.-2140987

PATIENT
  Age: 38 Year
  Sex: Female

DRUGS (1)
  1. ASCOR [Suspect]
     Active Substance: ASCORBIC ACID
     Route: 041
     Dates: start: 20230222, end: 20230222

REACTIONS (1)
  - Infusion site pain [None]

NARRATIVE: CASE EVENT DATE: 20230222
